FAERS Safety Report 24691705 (Version 1)
Quarter: 2024Q4

REPORT INFORMATION
  Report Type: Report from Study
  Country: US (occurrence: US)
  Receive Date: 20241203
  Receipt Date: 20241203
  Transmission Date: 20250114
  Serious: Yes (Other)
  Sender: BAYER HEALTHCARE PHARMACEUTICALS INC.
  Company Number: US-BAYER-2024A150893

PATIENT
  Age: 72 Year
  Sex: Male

DRUGS (2)
  1. NUBEQA [Suspect]
     Active Substance: DAROLUTAMIDE
     Indication: Prostate cancer
     Dosage: 300 MG, QD
     Route: 048
  2. NUBEQA [Suspect]
     Active Substance: DAROLUTAMIDE
     Indication: Prostate cancer
     Dosage: 600 MG, BID
     Route: 048

REACTIONS (7)
  - Cerebrovascular accident [Unknown]
  - Cardiac failure congestive [Unknown]
  - Amnesia [Unknown]
  - Confusional state [Not Recovered/Not Resolved]
  - Somnolence [Unknown]
  - Off label use [None]
  - Wrong technique in product usage process [None]
